FAERS Safety Report 7322018-1 (Version None)
Quarter: 2011Q1

REPORT INFORMATION
  Report Type: 
  Country: None (occurrence: None)
  Receive Date: 20110228
  Receipt Date: 20110218
  Transmission Date: 20110831
  Serious: No
  Sender: FDA-Public Use
  Company Number: US-PFIZER INC-2011038426

PATIENT
  Sex: Female

DRUGS (2)
  1. TORISEL [Suspect]
     Dosage: UNK
     Route: 042
  2. BENADRYL [Concomitant]
     Dosage: UNK

REACTIONS (5)
  - CHEST PAIN [None]
  - PRURITUS [None]
  - HYPERSENSITIVITY [None]
  - FEELING HOT [None]
  - BACK PAIN [None]
